FAERS Safety Report 16613761 (Version 1)
Quarter: 2019Q3

REPORT INFORMATION
  Report Type: Spontaneous
  Country: US (occurrence: US)
  Receive Date: 20190723
  Receipt Date: 20190723
  Transmission Date: 20191004
  Serious: No
  Sender: FDA-Public Use
  Company Number: PHEH2019US029397

PATIENT
  Sex: Female

DRUGS (1)
  1. RECLAST [Suspect]
     Active Substance: ZOLEDRONIC ACID
     Indication: PRODUCT USED FOR UNKNOWN INDICATION
     Route: 065
     Dates: start: 20190701

REACTIONS (6)
  - Nausea [Unknown]
  - Back pain [Unknown]
  - Myalgia [Unknown]
  - Abdominal distension [Unknown]
  - Arthralgia [Unknown]
  - Dizziness [Unknown]
